FAERS Safety Report 23529935 (Version 2)
Quarter: 2024Q1

REPORT INFORMATION
  Report Type: Other
  Country: DE (occurrence: DE)
  Receive Date: 20240216
  Receipt Date: 20240229
  Transmission Date: 20240409
  Serious: Yes (Other)
  Sender: FDA-Public Use
  Company Number: None

PATIENT

DRUGS (2)
  1. VYVGART [Suspect]
     Active Substance: EFGARTIGIMOD ALFA-FCAB
     Indication: Myasthenia gravis
     Dosage: 1000 MG
     Route: 058
     Dates: start: 20240112
  2. PHESGO [Concomitant]
     Active Substance: HYALURONIDASE-ZZXF\PERTUZUMAB\TRASTUZUMAB
     Indication: Breast cancer female
     Dosage: PERTUZUMAB STRENGTH: 600 MG, 1200 MG, TRASTUZUMAB STRENGTH: 600 MG
     Route: 058
     Dates: end: 20240118

REACTIONS (11)
  - Myasthenia gravis [Unknown]
  - Skin discomfort [Unknown]
  - Feeling cold [Unknown]
  - Somnolence [Unknown]
  - Asthenia [Unknown]
  - Malaise [Recovering/Resolving]
  - Injection site swelling [Unknown]
  - Injection site pruritus [Unknown]
  - Injection site pain [Unknown]
  - Injection site rash [Recovering/Resolving]
  - Rash maculo-papular [Recovering/Resolving]

NARRATIVE: CASE EVENT DATE: 20240101
